FAERS Safety Report 7021041-4 (Version None)
Quarter: 2010Q3

REPORT INFORMATION
  Report Type: 
  Country: None (occurrence: None)
  Receive Date: 20100929
  Receipt Date: 20100917
  Transmission Date: 20110219
  Serious: Yes (Other)
  Sender: FDA-Public Use
  Company Number: US-PFIZER INC-2010118294

PATIENT
  Sex: Male
  Weight: 65.76 kg

DRUGS (8)
  1. GENOTROPIN [Suspect]
     Indication: GROWTH HORMONE DEFICIENCY
     Dosage: 0.2 UG, 1X/DAY
     Route: 058
     Dates: start: 20030101
  2. GENOTROPIN [Suspect]
     Dosage: 0.4 UG, 1X/DAY
     Route: 058
     Dates: end: 20100601
  3. THYROID TAB [Concomitant]
     Indication: HYPOTHYROIDISM
     Dosage: 60 MG, 1X/DAY
     Route: 048
  4. MELATONIN [Concomitant]
     Indication: SLEEP DISORDER
     Dosage: 1X/DAY
  5. CO-Q-10 [Concomitant]
     Indication: SUPPLEMENTATION THERAPY
     Dosage: 300 MG, 2X/DAY
  6. LOVAZA [Concomitant]
     Indication: SUPPLEMENTATION THERAPY
     Dosage: 1000 MG, 1X/DAY
  7. ACETYLCYSTEINE [Concomitant]
     Indication: OSTEOARTHRITIS
     Dosage: 300 MG, 1X/DAY
  8. RESVERATROL [Concomitant]
     Dosage: UNK

REACTIONS (3)
  - ABDOMINAL PAIN [None]
  - LYMPHOMA [None]
  - OSTEOARTHRITIS [None]
